FAERS Safety Report 5729654-4 (Version None)
Quarter: 2008Q2

REPORT INFORMATION
  Report Type: 
  Country: None (occurrence: None)
  Receive Date: 20080501
  Receipt Date: 20080421
  Transmission Date: 20081010
  Serious: Yes (Hospitalization, Other)
  Sender: FDA-Public Use
  Company Number: 2006-01209

PATIENT
  Age: 62 Year
  Sex: Female
  Weight: 84 kg

DRUGS (25)
  1. VELCADE [Suspect]
     Indication: MULTIPLE MYELOMA
     Dosage: 1.30 MG, INTRAVENOUS
     Route: 042
     Dates: start: 20060505, end: 20060512
  2. CYCLOPHOSPHAMIDE [Suspect]
     Indication: MULTIPLE MYELOMA
     Dosage: 1500.00 MG, INTRAVENOUS
     Route: 042
     Dates: start: 20060505, end: 20060512
  3. DEXAMETHASONE TAB [Suspect]
     Dosage: 40 MG
     Dates: start: 20060505, end: 20070512
  4. ALLOPURINOL [Concomitant]
  5. HYDROMORPHONE HCL [Concomitant]
  6. NOVALGIN (METAMIZOLE SODIUM) DROP [Concomitant]
  7. RAMIPRIL [Concomitant]
  8. LACTULOSE [Concomitant]
  9. LORAZEPAM [Concomitant]
  10. ENOXAPARIN SODIUM [Concomitant]
  11. TEMAZEPAM [Concomitant]
  12. TOREM (TORASEMIDE) [Concomitant]
  13. FLUID INFUSION [Concomitant]
  14. METOCLOPRAMIDE (METOCLOPRAMIDE) [Concomitant]
  15. PANTOPRAZOLE SODIUM [Concomitant]
  16. SOLUTIONS FOR PARENTERAL NUTRITION [Concomitant]
  17. PAMIDRONATE DISODIUM [Concomitant]
  18. CATAPRES [Concomitant]
  19. ADALAT [Concomitant]
  20. DIMENHYDRINATE [Concomitant]
  21. METOPROLOL SUCCINATE [Concomitant]
  22. LEVOFLOXACIN [Concomitant]
  23. NORVASC [Concomitant]
  24. MIRTAZAPINE [Concomitant]
  25. LEVOFLOXACIN [Concomitant]

REACTIONS (1)
  - LEUKOPENIA [None]
